FAERS Safety Report 4774732-X (Version None)
Quarter: 2005Q3

REPORT INFORMATION
  Report Type: 
  Country: None (occurrence: None)
  Receive Date: 20050921
  Receipt Date: 20040722
  Transmission Date: 20060218
  Serious: Yes (Other)
  Sender: FDA-Public Use
  Company Number: GB-GLAXOSMITHKLINE-B0340418A

PATIENT
  Age: 36 Year
  Sex: Female

DRUGS (4)
  1. ZOFRAN [Suspect]
     Dosage: 4MG SINGLE DOSE
     Route: 042
     Dates: start: 20040623, end: 20040623
  2. BRONCHODILATORS [Concomitant]
     Indication: ASTHMA
     Route: 055
  3. STEROIDS [Concomitant]
     Indication: ASTHMA
     Route: 065
  4. RABEPRAZOLE SODIUM [Concomitant]
     Route: 065

REACTIONS (5)
  - BLINDNESS TRANSIENT [None]
  - CHEST DISCOMFORT [None]
  - DYSPNOEA [None]
  - FEELING ABNORMAL [None]
  - VISION BLURRED [None]
